FAERS Safety Report 14301198 (Version 9)
Quarter: 2022Q1

REPORT INFORMATION
  Report Type: Spontaneous
  Country: GB (occurrence: GB)
  Receive Date: 20171219
  Receipt Date: 20220215
  Transmission Date: 20220423
  Serious: Yes (Life-Threatening, Hospitalization, Other)
  Sender: FDA-Public Use
  Company Number: None

PATIENT
  Age: 70 Year
  Sex: Female

DRUGS (13)
  1. MIRTAZAPINE [Suspect]
     Active Substance: MIRTAZAPINE
     Indication: Product used for unknown indication
     Dosage: 15 MILLIGRAM, ONCE A DAY
     Route: 065
     Dates: start: 201405
  2. MIRTAZAPINE [Suspect]
     Active Substance: MIRTAZAPINE
     Dosage: 45 MILLIGRAM, TWO TIMES A DAY
     Route: 065
     Dates: start: 201407, end: 201407
  3. TRAMADOL [Suspect]
     Active Substance: TRAMADOL
     Indication: Product used for unknown indication
     Dosage: UNK
     Route: 065
  4. FENTANYL [Suspect]
     Active Substance: FENTANYL
     Indication: Back pain
     Dosage: 20100 ?G, EVERY HOUR
     Route: 062
  5. FENTANYL [Suspect]
     Active Substance: FENTANYL
     Indication: Analgesic therapy
     Dosage: 150 MICROGRAM, EVERY HOUR
     Route: 062
     Dates: start: 201012
  6. FENTANYL [Suspect]
     Active Substance: FENTANYL
     Indication: Product used for unknown indication
     Dosage: 100 MICROGRAM
     Route: 062
     Dates: start: 201407
  7. FENTANYL [Suspect]
     Active Substance: FENTANYL
     Dosage: 150 MCG, 1/HR
     Route: 062
     Dates: start: 20101201
  8. FENTANYL [Suspect]
     Active Substance: FENTANYL
     Dosage: 1400 MICROGRAM
     Route: 062
     Dates: start: 201407, end: 201407
  9. FENTANYL [Suspect]
     Active Substance: FENTANYL
     Dosage: 100 MICROGRAM
     Route: 065
     Dates: start: 20071001
  10. MORPHINE SULFATE [Suspect]
     Active Substance: MORPHINE SULFATE
     Indication: Product used for unknown indication
     Dosage: UNK
     Route: 048
     Dates: start: 200905
  11. OXYCODONE [Concomitant]
     Active Substance: OXYCODONE
     Indication: Analgesic therapy
     Dosage: 20 MILLIGRAM, ONCE A DAY (10 MG, BID)
     Route: 065
  12. OXYCODONE [Concomitant]
     Active Substance: OXYCODONE
     Indication: Nausea
  13. OXYCODONE [Concomitant]
     Active Substance: OXYCODONE
     Indication: Somnolence

REACTIONS (5)
  - Suicide attempt [Unknown]
  - Intentional overdose [Recovered/Resolved]
  - Drug ineffective [Unknown]
  - Intentional product misuse [Unknown]
  - Somnolence [Recovering/Resolving]

NARRATIVE: CASE EVENT DATE: 20140701
